FAERS Safety Report 15789919 (Version 3)
Quarter: 2019Q1

REPORT INFORMATION
  Report Type: Report from Study
  Country: DK (occurrence: DK)
  Receive Date: 20190104
  Receipt Date: 20190222
  Transmission Date: 20190417
  Serious: Yes (Hospitalization)
  Sender: FDA-Public Use
  Company Number: DK-ROCHE-2234727

PATIENT
  Age: 51 Year
  Sex: Female
  Weight: 52.5 kg

DRUGS (5)
  1. ATEZOLIZUMAB. [Suspect]
     Active Substance: ATEZOLIZUMAB
     Indication: TRIPLE NEGATIVE BREAST CANCER
     Dosage: MOST RECENT DOSE (1200 MG) ON 06/DEC/2018 AT 12.08
     Route: 042
     Dates: start: 20181206
  2. RO 6870810 (BET INHIBITOR) [Suspect]
     Active Substance: RO-6870810
     Indication: OVARIAN CANCER
  3. ATEZOLIZUMAB. [Suspect]
     Active Substance: ATEZOLIZUMAB
     Indication: OVARIAN CANCER
  4. DOMPERIDON [Concomitant]
     Active Substance: DOMPERIDONE
     Route: 065
     Dates: start: 20171020
  5. RO 6870810 (BET INHIBITOR) [Suspect]
     Active Substance: RO-6870810
     Indication: TRIPLE NEGATIVE BREAST CANCER
     Dosage: MOST RECENT DOSE (0.45 MG/KG) PRIOR TO SAE ONSET ON 15/DEC/2018 AT 8.55
     Route: 058
     Dates: start: 20181206

REACTIONS (1)
  - Systemic immune activation [Not Recovered/Not Resolved]

NARRATIVE: CASE EVENT DATE: 20181219
